FAERS Safety Report 6332720-6 (Version None)
Quarter: 2009Q3

REPORT INFORMATION
  Report Type: 
  Country: None (occurrence: None)
  Receive Date: 20090828
  Receipt Date: 20090818
  Transmission Date: 20100115
  Serious: Yes (Hospitalization, Other)
  Sender: FDA-Public Use
  Company Number: US-PFIZER INC-2009177644

PATIENT
  Sex: Female

DRUGS (1)
  1. SUTENT [Suspect]
     Indication: RENAL CELL CARCINOMA
     Dosage: 50 MG, 1X/DAY
     Route: 048

REACTIONS (14)
  - ALANINE AMINOTRANSFERASE INCREASED [None]
  - APPARENT DEATH [None]
  - ASPARTATE AMINOTRANSFERASE INCREASED [None]
  - BLOOD ALKALINE PHOSPHATASE INCREASED [None]
  - DYSGEUSIA [None]
  - DYSPEPSIA [None]
  - GENERAL PHYSICAL HEALTH DETERIORATION [None]
  - INSOMNIA [None]
  - JAUNDICE [None]
  - LIVER FUNCTION TEST ABNORMAL [None]
  - LYMPHADENOPATHY [None]
  - NECK PAIN [None]
  - ORAL HERPES [None]
  - SKIN EXFOLIATION [None]
